FAERS Safety Report 20001311 (Version 4)
Quarter: 2023Q1

REPORT INFORMATION
  Report Type: Report from Study
  Country: IL (occurrence: IL)
  Receive Date: 20211027
  Receipt Date: 20230116
  Transmission Date: 20230418
  Serious: Yes (Death, Hospitalization, Other)
  Sender: FDA-Public Use
  Company Number: IL-ABBVIE-21K-082-4134229-00

PATIENT
  Age: 80 Year
  Sex: Male
  Weight: 80 kg

DRUGS (36)
  1. VENETOCLAX [Suspect]
     Active Substance: VENETOCLAX
     Indication: Acute myeloid leukaemia
     Dosage: RAMP UP
     Route: 048
     Dates: start: 20210704, end: 20210704
  2. VENETOCLAX [Suspect]
     Active Substance: VENETOCLAX
     Indication: Acute myeloid leukaemia
     Dosage: RAMP UP
     Route: 048
     Dates: start: 20210705, end: 20210705
  3. VENETOCLAX [Suspect]
     Active Substance: VENETOCLAX
     Indication: Acute myeloid leukaemia
     Dosage: RAMP UP
     Route: 048
     Dates: start: 20210706, end: 20210706
  4. VENETOCLAX [Suspect]
     Active Substance: VENETOCLAX
     Indication: Acute myeloid leukaemia
     Dosage: RAMP UP
     Route: 048
     Dates: start: 20210707, end: 20210707
  5. VENETOCLAX [Suspect]
     Active Substance: VENETOCLAX
     Indication: Acute myeloid leukaemia
     Dosage: RAMP UP
     Route: 048
     Dates: start: 20210915
  6. AZACITIDINE [Suspect]
     Active Substance: AZACITIDINE
     Indication: Acute myeloid leukaemia
     Dosage: 150 MILLIGRAM?CYCLE 1
     Route: 042
     Dates: start: 20210704, end: 20210712
  7. AZACITIDINE [Suspect]
     Active Substance: AZACITIDINE
     Indication: Acute myeloid leukaemia
     Dosage: 150 MILLIGRAM?CYCLE 2
     Route: 042
     Dates: start: 20210801, end: 20210809
  8. AZACITIDINE [Suspect]
     Active Substance: AZACITIDINE
     Indication: Acute myeloid leukaemia
     Dosage: 150 MILLIGRAM?CYCLE 3
     Route: 042
     Dates: start: 20211003, end: 20211007
  9. AZACITIDINE [Suspect]
     Active Substance: AZACITIDINE
     Indication: Acute myeloid leukaemia
     Dosage: 150 MILLIGRAM
     Route: 042
     Dates: start: 20211226, end: 20220113
  10. AZACITIDINE [Suspect]
     Active Substance: AZACITIDINE
     Indication: Acute myeloid leukaemia
     Dosage: 150 MILLIGRAM?CYCLE 5
     Route: 042
     Dates: start: 20211226, end: 20220113
  11. AZACITIDINE [Suspect]
     Active Substance: AZACITIDINE
     Indication: Acute myeloid leukaemia
     Dosage: 150 MILLIGRAM?CYCLE 4
     Route: 042
     Dates: start: 20211124, end: 20211130
  12. APIXABAN [Concomitant]
     Active Substance: APIXABAN
     Indication: Deep vein thrombosis
     Dates: start: 2012, end: 20210810
  13. APIXABAN [Concomitant]
     Active Substance: APIXABAN
     Indication: Deep vein thrombosis
     Dates: start: 2012, end: 20210810
  14. ATORVASTATIN [Concomitant]
     Active Substance: ATORVASTATIN
     Indication: Hypercholesterolaemia
     Dates: start: 2011
  15. ATORVASTATIN [Concomitant]
     Active Substance: ATORVASTATIN
     Indication: Hypercholesterolaemia
     Dates: start: 2011
  16. RUXOLITINIB PHOSPHATE [Concomitant]
     Active Substance: RUXOLITINIB PHOSPHATE
     Indication: Myelofibrosis
     Dates: start: 202103, end: 20210810
  17. RUXOLITINIB PHOSPHATE [Concomitant]
     Active Substance: RUXOLITINIB PHOSPHATE
     Indication: Myelofibrosis
     Dates: start: 202103, end: 20210810
  18. ALLOPURINOL [Concomitant]
     Active Substance: ALLOPURINOL
     Indication: Prophylaxis
     Dates: start: 2021
  19. ALLOPURINOL [Concomitant]
     Active Substance: ALLOPURINOL
     Indication: Prophylaxis
     Dates: start: 2021
  20. RAMIPRIL [Concomitant]
     Active Substance: RAMIPRIL
     Indication: Hypertension
     Dates: start: 2015, end: 20210810
  21. RAMIPRIL [Concomitant]
     Active Substance: RAMIPRIL
     Indication: Hypertension
     Dates: start: 2015, end: 20210810
  22. AVASTIN [Concomitant]
     Active Substance: BEVACIZUMAB
     Indication: Macular degeneration
     Dates: start: 202103
  23. AVASTIN [Concomitant]
     Active Substance: BEVACIZUMAB
     Indication: Macular degeneration
     Dates: start: 202103
  24. CIPROFLOXACIN [Concomitant]
     Active Substance: CIPROFLOXACIN
     Indication: Bacteraemia
     Dates: start: 20210810, end: 20210824
  25. CIPROFLOXACIN [Concomitant]
     Active Substance: CIPROFLOXACIN
     Indication: Bacteraemia
     Dates: start: 20210810, end: 20210824
  26. AMOXICILLIN [Concomitant]
     Active Substance: AMOXICILLIN
     Indication: Bacteraemia
     Dates: start: 20210810, end: 20210824
  27. AMOXICILLIN [Concomitant]
     Active Substance: AMOXICILLIN
     Indication: Bacteraemia
     Dates: start: 20210810, end: 20210824
  28. ETOPOSIDE [Concomitant]
     Active Substance: ETOPOSIDE
     Indication: Leukocytosis
     Dates: start: 20220224, end: 20220224
  29. ETOPOSIDE [Concomitant]
     Active Substance: ETOPOSIDE
     Indication: Leukocytosis
     Dates: start: 20220224, end: 20220224
  30. PFIZER-BIONTECH COVID-19 VACCINE [Concomitant]
     Active Substance: TOZINAMERAN
     Indication: COVID-19 prophylaxis
     Dosage: ONE IN ONCE FREQUENCY
     Dates: start: 20210902, end: 20210902
  31. PFIZER-BIONTECH COVID-19 VACCINE [Concomitant]
     Active Substance: TOZINAMERAN
     Indication: COVID-19 prophylaxis
     Dosage: ONE IN ONCE FREQUENCY
     Dates: start: 20210113, end: 20210113
  32. PFIZER-BIONTECH COVID-19 VACCINE [Concomitant]
     Active Substance: TOZINAMERAN
     Indication: COVID-19 prophylaxis
     Dosage: ONE IN ONCE FREQUENCY
     Dates: start: 20201223, end: 20201223
  33. ESOMEPRAZOLE [Concomitant]
     Active Substance: ESOMEPRAZOLE
     Indication: Gastrooesophageal reflux disease
     Dates: start: 20110401
  34. ESOMEPRAZOLE [Concomitant]
     Active Substance: ESOMEPRAZOLE
     Indication: Gastrooesophageal reflux disease
     Dates: start: 20110401
  35. HYDROCORTISONE [Concomitant]
     Active Substance: HYDROCORTISONE
     Indication: Prophylaxis
     Dates: start: 20220224, end: 20220224
  36. HYDROCORTISONE [Concomitant]
     Active Substance: HYDROCORTISONE
     Indication: Prophylaxis
     Dates: start: 20220224, end: 20220224

REACTIONS (9)
  - Septic shock [Fatal]
  - Disease progression [Unknown]
  - White blood cell count decreased [Recovered/Resolved]
  - Platelet count decreased [Recovered/Resolved]
  - Leukocytosis [Not Recovered/Not Resolved]
  - Bacteraemia [Recovered/Resolved]
  - Anaemia [Recovered/Resolved]
  - Pain [Not Recovered/Not Resolved]
  - Blood creatinine increased [Recovered/Resolved]

NARRATIVE: CASE EVENT DATE: 20210809
